FAERS Safety Report 18875260 (Version 2)
Quarter: 2021Q4

REPORT INFORMATION
  Report Type: Spontaneous
  Country: US (occurrence: US)
  Receive Date: 20210210
  Receipt Date: 20211001
  Transmission Date: 20220303
  Serious: Yes (Other)
  Sender: FDA-Public Use
  Company Number: 2021A027440

PATIENT
  Age: 47 Year
  Sex: Female

DRUGS (24)
  1. NEXIUM [Suspect]
     Active Substance: ESOMEPRAZOLE MAGNESIUM
     Indication: Gastrooesophageal reflux disease
     Dosage: 40.0MG UNKNOWN
     Route: 048
     Dates: start: 2013, end: 2017
  2. NEXIUM [Suspect]
     Active Substance: ESOMEPRAZOLE MAGNESIUM
     Indication: Gastrooesophageal reflux disease
     Dosage: GENERIC40.0MG UNKNOWN
     Route: 065
     Dates: start: 2017
  3. HYDROCODONE BITARTRATE AND ACETAMINOPHEN [Concomitant]
     Active Substance: ACETAMINOPHEN\HYDROCODONE BITARTRATE
     Route: 065
     Dates: start: 20130130
  4. CEPHALEXIN [Concomitant]
     Active Substance: CEPHALEXIN
     Route: 065
  5. PROMETHAZINE [Concomitant]
     Active Substance: PROMETHAZINE HYDROCHLORIDE
     Route: 065
  6. SULFAMETHOXAZOLE/PHENAZOPYRIDINE [Concomitant]
     Route: 065
     Dates: start: 20130701
  7. AMOXICILLIN [Concomitant]
     Active Substance: AMOXICILLIN
     Route: 065
     Dates: start: 20130702
  8. CIPROFLOXACIN [Concomitant]
     Active Substance: CIPROFLOXACIN
     Route: 065
     Dates: start: 20130702
  9. FLUOXETINE [Concomitant]
     Active Substance: FLUOXETINE HYDROCHLORIDE
     Route: 065
     Dates: start: 20131108
  10. DICLOFENAC [Concomitant]
     Active Substance: DICLOFENAC
     Route: 065
     Dates: start: 20140221
  11. MELOXICAM [Concomitant]
     Active Substance: MELOXICAM
     Route: 065
     Dates: start: 20140916
  12. TRAMADOL [Concomitant]
     Active Substance: TRAMADOL
     Route: 065
     Dates: start: 20140916
  13. SERTRALINE [Concomitant]
     Active Substance: SERTRALINE HYDROCHLORIDE
     Route: 065
     Dates: start: 20150105
  14. ALAVERT ALLERGY [Concomitant]
     Active Substance: LORATADINE
     Route: 065
     Dates: start: 20150420
  15. CLONAZEPAM [Concomitant]
     Active Substance: CLONAZEPAM
     Route: 065
     Dates: start: 20160218
  16. CLONIDINE [Concomitant]
     Active Substance: CLONIDINE
     Route: 065
     Dates: start: 20160401
  17. PRAVASTATIN [Concomitant]
     Active Substance: PRAVASTATIN
     Route: 065
     Dates: start: 20170925
  18. FLUCONAZOLE [Concomitant]
     Active Substance: FLUCONAZOLE
     Route: 065
     Dates: start: 20170925
  19. NIFEDIPINE [Concomitant]
     Active Substance: NIFEDIPINE
     Route: 065
     Dates: start: 20171219
  20. DOCUSATE SODIUM [Concomitant]
     Active Substance: DOCUSATE SODIUM
     Route: 065
     Dates: start: 20191106
  21. AZITHROMYCIN ANHYDROUS [Concomitant]
     Active Substance: AZITHROMYCIN ANHYDROUS
     Route: 065
     Dates: start: 20170710
  22. AMLODIPINE [Concomitant]
     Active Substance: AMLODIPINE BESYLATE
     Route: 065
     Dates: start: 20170710
  23. NEORAL [Concomitant]
     Active Substance: CYCLOSPORINE
     Route: 065
     Dates: start: 20170710
  24. PERMETHRIN [Concomitant]
     Active Substance: PERMETHRIN
     Route: 065

REACTIONS (2)
  - Acute kidney injury [Not Recovered/Not Resolved]
  - Chronic kidney disease [Not Recovered/Not Resolved]

NARRATIVE: CASE EVENT DATE: 20150101
